FAERS Safety Report 7460404-X (Version None)
Quarter: 2011Q2

REPORT INFORMATION
  Report Type: 
  Country: None (occurrence: None)
  Receive Date: 20110505
  Receipt Date: 20110428
  Transmission Date: 20111010
  Serious: Yes (Death)
  Sender: FDA-Public Use
  Company Number: A0926089A

PATIENT
  Sex: Male

DRUGS (5)
  1. WELLBUTRIN [Suspect]
     Indication: INSOMNIA
     Route: 048
  2. ZOLPIDEM [Suspect]
     Indication: INSOMNIA
     Dosage: 10MG PER DAY
     Route: 048
  3. CELEXA [Suspect]
     Indication: INSOMNIA
     Route: 048
  4. TRAZODONE HCL [Suspect]
     Indication: INSOMNIA
     Route: 048
  5. ZOLPIDEM [Suspect]
     Dosage: 12.5MG AT NIGHT
     Route: 048

REACTIONS (6)
  - FALL [None]
  - COMPLETED SUICIDE [None]
  - DROWNING [None]
  - EMOTIONAL DISORDER [None]
  - DRUG LEVEL INCREASED [None]
  - DRUG INEFFECTIVE [None]
